FAERS Safety Report 13817934 (Version 1)
Quarter: 2017Q3

REPORT INFORMATION
  Report Type: Spontaneous
  Country: US (occurrence: US)
  Receive Date: 20170731
  Receipt Date: 20170731
  Transmission Date: 20171127
  Serious: Yes (Disabling)
  Sender: FDA-Public Use
  Company Number: US-ROCHE-733681

PATIENT
  Age: 79 Year
  Sex: Female
  Weight: 77.1 kg

DRUGS (4)
  1. BONIVA [Suspect]
     Active Substance: IBANDRONATE SODIUM
     Indication: SENILE OSTEOPOROSIS
     Dosage: FREQUENCY REPORTED AS ONCE
     Route: 042
  2. NEURONTIN [Concomitant]
     Active Substance: GABAPENTIN
     Route: 065
  3. LORAZEPAM. [Concomitant]
     Active Substance: LORAZEPAM
     Route: 065
  4. NEXIUM [Concomitant]
     Active Substance: ESOMEPRAZOLE MAGNESIUM
     Indication: ILL-DEFINED DISORDER
     Route: 065

REACTIONS (5)
  - Injection site swelling [Not Recovered/Not Resolved]
  - Injection site erythema [Not Recovered/Not Resolved]
  - Infusion site extravasation [Unknown]
  - Injection site pain [Not Recovered/Not Resolved]
  - Phlebitis [Unknown]

NARRATIVE: CASE EVENT DATE: 20101005
